FAERS Safety Report 10216691 (Version 1)
Quarter: 2014Q2

REPORT INFORMATION
  Report Type: Spontaneous
  Country: US (occurrence: US)
  Receive Date: 20140604
  Receipt Date: 20140604
  Transmission Date: 20141212
  Serious: Yes (Other)
  Sender: FDA-Public Use
  Company Number: US-ROXANE LABORATORIES, INC.-2014-RO-00840RO

PATIENT
  Age: 56 Year
  Sex: Female

DRUGS (9)
  1. ESZOPICLONE [Suspect]
     Indication: INSOMNIA
     Route: 065
  2. ESOMEPRAZOLE [Concomitant]
     Indication: GASTROOESOPHAGEAL REFLUX DISEASE
     Route: 065
  3. ROSUVASTATIN [Concomitant]
     Route: 065
  4. DESLORATADINE [Concomitant]
     Route: 065
  5. VITAMIN C [Concomitant]
     Route: 065
  6. VITAMIN D [Concomitant]
     Route: 065
  7. STOOL SOFTENER [Concomitant]
     Route: 065
  8. ASPIRIN [Concomitant]
     Route: 065
  9. MULTIVITAMIN [Concomitant]
     Route: 065

REACTIONS (1)
  - Hiccups [Recovered/Resolved]
